FAERS Safety Report 4452179-3 (Version None)
Quarter: 2004Q3

REPORT INFORMATION
  Report Type: 
  Country: None (occurrence: None)
  Receive Date: 20040913
  Receipt Date: 20040716
  Transmission Date: 20050211
  Serious: No
  Sender: FDA-Public Use
  Company Number: 2004-BP-05734BP(0)

PATIENT
  Age: 77 Year
  Sex: Female

DRUGS (6)
  1. SPIRIVA [Suspect]
     Indication: CHRONIC OBSTRUCTIVE AIRWAYS DISEASE
     Dosage: 18 MCG (18 MCG, 1 CAP OD), IH
     Route: 055
     Dates: start: 20040709
  2. FLOVENT [Concomitant]
  3. ALBUTEROL NEBULIZER (SALBUTAMOL) [Concomitant]
  4. ALBUTEROL NEBULIZER (SALBUTAMOL) [Concomitant]
  5. ALBUTEROL MDI (SALBUTAMOL) [Concomitant]
  6. OXYGEN (OXYGEN) [Concomitant]

REACTIONS (1)
  - DYSPNOEA EXACERBATED [None]
